FAERS Safety Report 9837924 (Version 1)
Quarter: 2013Q4

REPORT INFORMATION
  Report Type: Spontaneous
  Country: US (occurrence: None)
  Receive Date: 20131205
  Receipt Date: 20131205
  Transmission Date: 20140711
  Serious: No
  Sender: FDA-Public Use
  Company Number: 163-POMAL-13103300

PATIENT
  Age: 58 Year
  Sex: Male
  Weight: 104.33 kg

DRUGS (10)
  1. POMALYST (POMALIDOMIDE) (2 MILLIGRAM, CAPSULES) [Suspect]
     Indication: PLASMA CELL MYELOMA
     Dosage: 2 MG, 21 IN 21 D, PO
     Route: 048
     Dates: start: 20130801
  2. ZOMETA (ZOLEDRONIC ACID) [Concomitant]
  3. GABAPENTIN (GABAPENTIN) [Concomitant]
  4. LORAZEPAM (LORAZEPAM) [Concomitant]
  5. OMEPRAZOLE (OMEPRAZOLE) [Concomitant]
  6. ACYCLOVIR (ACICLOVIR) (ACICLOVIR) [Concomitant]
  7. HYDROCODONE-ACETAMINOPHEN (PROCET /USA/) [Concomitant]
  8. MULTIVITAMIN (MULTIVITAMINS) [Concomitant]
  9. FOLIC ACID (FOLIC ACID) [Concomitant]
  10. VELCADE (BORTEZOMIB) [Concomitant]

REACTIONS (1)
  - Increased tendency to bruise [None]
